FAERS Safety Report 7989333-X (Version None)
Quarter: 2011Q4

REPORT INFORMATION
  Report Type: 
  Country: None (occurrence: None)
  Receive Date: 20111219
  Receipt Date: 20111206
  Transmission Date: 20120403
  Serious: Yes (Death)
  Sender: FDA-Public Use
  Company Number: US-CELGENEUS-163-21880-11121490

PATIENT
  Sex: Male

DRUGS (10)
  1. PENTAMIDINE [Concomitant]
     Dosage: 200 MILLIGRAM
     Route: 041
  2. ASPIRIN [Concomitant]
     Dosage: 81 MILLIGRAM
     Route: 048
  3. MULTI-VITAMINS [Concomitant]
     Dosage: 1 TABLET
     Route: 048
  4. ROXICODONE [Concomitant]
     Dosage: 5 MILLIGRAM
     Route: 048
  5. REVLIMID [Suspect]
     Indication: MULTIPLE MYELOMA
     Dosage: 25 MILLIGRAM
     Route: 048
     Dates: start: 20110119, end: 20110901
  6. AREDIA [Concomitant]
     Dosage: 60 MILLIGRAM
     Route: 041
  7. RITALIN [Concomitant]
     Dosage: .5 MILLIGRAM
     Route: 048
  8. AMPICILLIN [Concomitant]
     Route: 048
  9. IMODIUM A-D [Concomitant]
     Dosage: 2 MILLIGRAM
     Route: 048
  10. ATIVAN [Concomitant]
     Indication: ANXIETY
     Dosage: .5 MILLIGRAM
     Route: 048

REACTIONS (1)
  - MULTIPLE MYELOMA [None]
